FAERS Safety Report 25539662 (Version 7)
Quarter: 2025Q4

REPORT INFORMATION
  Report Type: Spontaneous
  Country: CA (occurrence: CA)
  Receive Date: 20250710
  Receipt Date: 20251118
  Transmission Date: 20260117
  Serious: Yes (Hospitalization, Other)
  Sender: PFIZER
  Company Number: CA-PFIZER INC-202500138763

PATIENT
  Age: 61 Year
  Sex: Male
  Weight: 107 kg

DRUGS (8)
  1. IXIFI [Suspect]
     Active Substance: INFLIXIMAB-QBTX
     Indication: Colitis ulcerative
     Dosage: WKS 0,2,6 THEN Q 8 WKS
     Route: 042
     Dates: start: 20250605, end: 2025
  2. IXIFI [Suspect]
     Active Substance: INFLIXIMAB-QBTX
     Dosage: AFTER 7 WEEKS AND 1 DAY
     Route: 042
     Dates: start: 20250725
  3. IXIFI [Suspect]
     Active Substance: INFLIXIMAB-QBTX
     Dosage: AFTER 3 WEEKS AND 6 DAYS
     Route: 042
     Dates: start: 20250821
  4. IXIFI [Suspect]
     Active Substance: INFLIXIMAB-QBTX
     Dosage: 4 WEEKS AND 6 DAYS
     Route: 042
     Dates: start: 20250924
  5. IXIFI [Suspect]
     Active Substance: INFLIXIMAB-QBTX
     Dosage: EVERY 4 WEEK
     Route: 042
     Dates: start: 20251015
  6. IXIFI [Suspect]
     Active Substance: INFLIXIMAB-QBTX
     Dosage: EVERY 4 WEEK
     Route: 042
     Dates: start: 20251113
  7. MESALAMINE [Concomitant]
     Active Substance: MESALAMINE
     Dosage: UNK
  8. PREDNISONE [Concomitant]
     Active Substance: PREDNISONE
     Dosage: UNK

REACTIONS (9)
  - Nephrolithiasis [Recovered/Resolved]
  - Pyrexia [Not Recovered/Not Resolved]
  - Nausea [Not Recovered/Not Resolved]
  - Abdominal pain lower [Not Recovered/Not Resolved]
  - Flank pain [Not Recovered/Not Resolved]
  - Vomiting [Not Recovered/Not Resolved]
  - Chills [Not Recovered/Not Resolved]
  - Condition aggravated [Recovering/Resolving]
  - Off label use [Unknown]

NARRATIVE: CASE EVENT DATE: 20250101
